FAERS Safety Report 15389447 (Version 1)
Quarter: 2018Q3

REPORT INFORMATION
  Report Type: Spontaneous
  Country: FR (occurrence: FR)
  Receive Date: 20180917
  Receipt Date: 20180917
  Transmission Date: 20181010
  Serious: Yes (Death)
  Sender: FDA-Public Use
  Company Number: FR-BAXTER-2018BAX023439

PATIENT
  Age: 52 Year
  Sex: Male
  Weight: 96 kg

DRUGS (13)
  1. ONDANSETRON ACCORD [Suspect]
     Active Substance: ONDANSETRON
     Indication: NAUSEA
     Route: 042
     Dates: start: 20180807, end: 20180816
  2. EMEND [Suspect]
     Active Substance: APREPITANT
     Indication: NAUSEA
     Route: 048
     Dates: start: 20180806, end: 20180816
  3. METRONIDAZOLE B BRAUN [Suspect]
     Active Substance: METRONIDAZOLE
     Indication: INFECTION
     Route: 041
     Dates: start: 20180816, end: 20180823
  4. ENDOXAN 1000 MG, POUDRE POUR SOLUTIONINJECTABLE [Suspect]
     Active Substance: CYCLOPHOSPHAMIDE
     Indication: BONE MARROW TRANSPLANT
     Route: 041
     Dates: start: 20180810, end: 20180811
  5. IMIPENEM CILASTATINE MYLAN [Suspect]
     Active Substance: IMIPENEM
     Indication: INFECTION
     Route: 041
     Dates: start: 20180820, end: 20180824
  6. SANDIMMUN [Suspect]
     Active Substance: CYCLOSPORINE
     Indication: BONE MARROW TRANSPLANT
     Dosage: INJECTABLE SOLUTION FOR I.V. INFUSION
     Route: 041
     Dates: start: 20180811, end: 20180824
  7. LINEZOLID KABI [Suspect]
     Active Substance: LINEZOLID
     Indication: INFECTION
     Route: 041
     Dates: start: 20180816, end: 20180823
  8. CORDARONE [Suspect]
     Active Substance: AMIODARONE HYDROCHLORIDE
     Indication: ATRIAL FIBRILLATION
     Dosage: 150 MG/3 ML, SOLUTION FOR INJECTION IN AMPOULE (IV)
     Route: 042
     Dates: start: 20180816, end: 20180822
  9. MYCAMINE [Suspect]
     Active Substance: MICAFUNGIN SODIUM
     Indication: INFECTION
     Route: 041
     Dates: start: 20180817, end: 20180823
  10. ACICLOVIR MYLAN [Suspect]
     Active Substance: ACYCLOVIR
     Indication: INFECTION
     Route: 042
     Dates: start: 20180818, end: 20180824
  11. PANTOPRAZOLE MYLAN [Suspect]
     Active Substance: PANTOPRAZOLE SODIUM
     Indication: NAUSEA
     Route: 048
     Dates: start: 20180806, end: 20180816
  12. PIPERACILLINE TAZOBACTAM MYLAN [Suspect]
     Active Substance: PIPERACILLIN SODIUM\TAZOBACTAM SODIUM
     Indication: INFECTION
     Route: 041
     Dates: start: 20180815, end: 20180820
  13. XENETIX [Suspect]
     Active Substance: IOBITRIDOL
     Indication: COMPUTERISED TOMOGRAM
     Route: 042
     Dates: start: 20180816, end: 20180816

REACTIONS (1)
  - Toxic epidermal necrolysis [Fatal]

NARRATIVE: CASE EVENT DATE: 20180821
